FAERS Safety Report 8977869 (Version 1)
Quarter: 2012Q4

REPORT INFORMATION
  Report Type: 
  Country: IT (occurrence: IT)
  Receive Date: 20121219
  Receipt Date: 20121219
  Transmission Date: 20130627
  Serious: Yes (Hospitalization)
  Sender: FDA-Public Use
  Company Number: IT-ASTRAZENECA-2012SE92507

PATIENT
  Sex: Female

DRUGS (3)
  1. SEROQUEL [Suspect]
     Indication: PSYCHOTIC DISORDER
     Route: 048
     Dates: start: 20121110, end: 20121110
  2. TOPAMAX [Suspect]
     Indication: PSYCHOTIC DISORDER
     Route: 048
     Dates: start: 20121110, end: 20121110
  3. HALDOL [Suspect]
     Indication: PSYCHOTIC DISORDER
     Route: 048
     Dates: start: 20121110, end: 20121110

REACTIONS (2)
  - Sopor [Unknown]
  - Drug abuse [Unknown]
